FAERS Safety Report 21334765 (Version 1)
Quarter: 2022Q3

REPORT INFORMATION
  Report Type: Spontaneous
  Country: CA (occurrence: CA)
  Receive Date: 20220914
  Receipt Date: 20220914
  Transmission Date: 20221026
  Serious: No
  Sender: FDA-Public Use
  Company Number: CA-LEADIANT BIOSCIENCES INC-2022STPI000160

PATIENT
  Age: 74 Year
  Sex: Male

DRUGS (1)
  1. MATULANE [Suspect]
     Active Substance: PROCARBAZINE HYDROCHLORIDE
     Indication: Diffuse large B-cell lymphoma
     Route: 048

REACTIONS (1)
  - Elderly [None]
